FAERS Safety Report 13456831 (Version 1)
Quarter: 2017Q2

REPORT INFORMATION
  Report Type: Spontaneous
  Country: US (occurrence: US)
  Receive Date: 20170418
  Receipt Date: 20170418
  Transmission Date: 20170830
  Serious: Yes (Death, Hospitalization, Other)
  Sender: FDA-Public Use
  Company Number: US-AMGEN-USASP2017056767

PATIENT
  Age: 59 Year
  Sex: Female

DRUGS (5)
  1. PREVACID [Concomitant]
     Active Substance: LANSOPRAZOLE
     Dosage: UNK
     Route: 065
  2. ISORDIL [Concomitant]
     Active Substance: ISOSORBIDE DINITRATE
     Dosage: UNK
     Route: 065
  3. MYCOPHENOLATE MOFETIL. [Concomitant]
     Active Substance: MYCOPHENOLATE MOFETIL
     Dosage: UNK
     Route: 065
  4. ENBREL [Suspect]
     Active Substance: ETANERCEPT
     Indication: RHEUMATOID ARTHRITIS
     Dosage: 50 MG, QWK
     Route: 058
     Dates: start: 2009
  5. METOPROLOL SUCCINATE. [Concomitant]
     Active Substance: METOPROLOL SUCCINATE
     Dosage: UNK
     Route: 065

REACTIONS (2)
  - Scleroderma [Fatal]
  - Aspiration [Recovered/Resolved]

NARRATIVE: CASE EVENT DATE: 20170328
